APPROVED DRUG PRODUCT: ABIRATERONE ACETATE
Active Ingredient: ABIRATERONE ACETATE
Strength: 250MG
Dosage Form/Route: TABLET;ORAL
Application: A212462 | Product #001 | TE Code: AB
Applicant: QILU PHARMACEUTICAL CO LTD
Approved: Sep 27, 2019 | RLD: No | RS: No | Type: RX